FAERS Safety Report 10519777 (Version 1)
Quarter: 2014Q4

REPORT INFORMATION
  Report Type: Spontaneous
  Country: US (occurrence: None)
  Receive Date: 20141014
  Receipt Date: 20141014
  Transmission Date: 20150528
  Serious: Yes (Life-Threatening)
  Sender: FDA-Public Use
  Company Number: None

PATIENT
  Age: 84 Year
  Sex: Male
  Weight: 72.4 kg

DRUGS (1)
  1. WARFARIN [Suspect]
     Active Substance: WARFARIN
     Indication: HEART VALVE REPLACEMENT
     Route: 048
     Dates: start: 20121219, end: 20130903

REACTIONS (4)
  - Lower gastrointestinal haemorrhage [None]
  - Haematocrit decreased [None]
  - Haemoglobin decreased [None]
  - Vascular occlusion [None]

NARRATIVE: CASE EVENT DATE: 20130903
